FAERS Safety Report 11314991 (Version 4)
Quarter: 2015Q3

REPORT INFORMATION
  Report Type: Spontaneous
  Country: IT (occurrence: IT)
  Receive Date: 20150727
  Receipt Date: 20150928
  Transmission Date: 20151125
  Serious: Yes (Death, Life-Threatening, Hospitalization)
  Sender: FDA-Public Use
  Company Number: IT-BAXTER-2015BAX039986

PATIENT
  Age: 65 Year
  Sex: Male

DRUGS (5)
  1. ENDOXAN BAXTER [Suspect]
     Active Substance: CYCLOPHOSPHAMIDE
     Indication: B-CELL LYMPHOMA
     Route: 042
     Dates: start: 20150626, end: 20150626
  2. MABTHERA [Suspect]
     Active Substance: RITUXIMAB
     Indication: B-CELL LYMPHOMA
     Route: 042
     Dates: start: 20150629, end: 20150629
  3. VINCRISTINA SOLFATO [Suspect]
     Active Substance: VINCRISTINE SULFATE
     Indication: B-CELL LYMPHOMA
     Route: 042
     Dates: start: 20150626, end: 20150626
  4. MABTHERA [Suspect]
     Active Substance: RITUXIMAB
     Dosage: 500MG/50ML
     Route: 065
  5. ADRIBLASTINA [Suspect]
     Active Substance: DOXORUBICIN HYDROCHLORIDE
     Indication: B-CELL LYMPHOMA
     Route: 042
     Dates: start: 20150626, end: 20150626

REACTIONS (5)
  - Febrile neutropenia [Fatal]
  - Respiratory failure [Fatal]
  - Septic shock [Fatal]
  - Anuria [Fatal]
  - Lung infection [Fatal]

NARRATIVE: CASE EVENT DATE: 20150705
